FAERS Safety Report 9349261 (Version 1)
Quarter: 2013Q2

REPORT INFORMATION
  Report Type: Spontaneous
  Country: US (occurrence: US)
  Receive Date: 20130614
  Receipt Date: 20130614
  Transmission Date: 20140414
  Serious: Yes (Death, Hospitalization)
  Sender: FDA-Public Use
  Company Number: US-BRISTOL-MYERS SQUIBB COMPANY-19010180

PATIENT
  Age: 59 Year
  Sex: Male

DRUGS (1)
  1. BELATACEPT [Suspect]

REACTIONS (4)
  - Cryptococcal fungaemia [Fatal]
  - Sepsis [Unknown]
  - Shock [Unknown]
  - Multi-organ failure [Unknown]
